FAERS Safety Report 9730381 (Version 3)
Quarter: 2014Q1

REPORT INFORMATION
  Report Type: Report from Study
  Country: DE (occurrence: DE)
  Receive Date: 20131204
  Receipt Date: 20140318
  Transmission Date: 20141002
  Serious: Yes (Hospitalization, Other)
  Sender: FDA-Public Use
  Company Number: DE-ROCHE-1309712

PATIENT
  Age: 59 Year
  Sex: Female
  Weight: 44.3 kg

DRUGS (13)
  1. RIBAVIRIN [Suspect]
     Indication: HEPATITIS C
     Dosage: 200/400 MG ALTERNATING DAILY
     Route: 065
     Dates: start: 20130826
  2. SOFOSBUVIR [Suspect]
     Indication: HEPATITIS C
     Route: 048
     Dates: start: 20130919
  3. SIMEPREVIR [Suspect]
     Indication: HEPATITIS C
     Route: 048
     Dates: start: 20130919
  4. ALLOPURINOL [Concomitant]
     Route: 065
  5. PEG-INTERFERON ALFA 2A [Concomitant]
     Route: 065
     Dates: start: 20130828, end: 20130919
  6. SANDIMMUNE [Concomitant]
  7. PREDNISOLONE [Concomitant]
  8. LEVOTHYROXINE [Concomitant]
  9. PANTOPRAZOLE [Concomitant]
  10. FERRO SANOL [Concomitant]
  11. DERMESTRIL [Concomitant]
  12. URSODEOXYCHOLIC ACID [Concomitant]
  13. DARBEPOETIN ALFA [Concomitant]

REACTIONS (16)
  - Anaemia [Recovered/Resolved]
  - Abdominal pain [Recovered/Resolved]
  - Headache [Not Recovered/Not Resolved]
  - Eyelid oedema [Not Recovered/Not Resolved]
  - Lipase increased [Not Recovered/Not Resolved]
  - Leukopenia [Recovered/Resolved]
  - Blood glucose increased [Not Recovered/Not Resolved]
  - Thrombocytopenia [Recovered/Resolved]
  - Leukopenia [Not Recovered/Not Resolved]
  - Immunosuppressant drug level increased [Recovered/Resolved]
  - Hypothyroidism [Not Recovered/Not Resolved]
  - Alanine aminotransferase increased [Recovered/Resolved]
  - Immunosuppressant drug level decreased [Recovered/Resolved]
  - Leukopenia [Unknown]
  - Anaemia [Not Recovered/Not Resolved]
  - Anaemia [Recovered/Resolved]
